FAERS Safety Report 7122197-5 (Version None)
Quarter: 2010Q4

REPORT INFORMATION
  Report Type: 
  Country: None (occurrence: None)
  Receive Date: 20101124
  Receipt Date: 20101110
  Transmission Date: 20110411
  Serious: Yes (Hospitalization)
  Sender: FDA-Public Use
  Company Number: GXKR2010IL11637

PATIENT
  Age: 77 Year
  Sex: Male

DRUGS (1)
  1. AMOXICILLIN [Suspect]
     Indication: GINGIVITIS
     Dosage: 500 MG, QD
     Route: 048

REACTIONS (11)
  - CHILLS [None]
  - COGNITIVE DISORDER [None]
  - CONFUSIONAL STATE [None]
  - ENCEPHALITIS [None]
  - HEADACHE [None]
  - MUSCULAR WEAKNESS [None]
  - NUCHAL RIGIDITY [None]
  - PHONOPHOBIA [None]
  - PSYCHOMOTOR RETARDATION [None]
  - PYREXIA [None]
  - UNRESPONSIVE TO STIMULI [None]
